FAERS Safety Report 19112808 (Version 2)
Quarter: 2021Q2

REPORT INFORMATION
  Report Type: Report from Study
  Country: None (occurrence: JP)
  Receive Date: 20210409
  Receipt Date: 20210428
  Transmission Date: 20210717
  Serious: Yes (Other)
  Sender: FDA-Public Use
  Company Number: JP-ABBVIE-21P-087-3851914-00

PATIENT
  Age: 67 Year
  Sex: Male

DRUGS (1)
  1. LEUPLIN [Suspect]
     Active Substance: LEUPROLIDE ACETATE
     Indication: BULBOSPINAL MUSCULAR ATROPHY CONGENITAL
     Dosage: 11.25 MILLIGRAM, Q3MONTHS
     Route: 058
     Dates: start: 20180129

REACTIONS (2)
  - Diabetes mellitus [Unknown]
  - Lipid metabolism disorder [Unknown]
